FAERS Safety Report 16496977 (Version 1)
Quarter: 2019Q2

REPORT INFORMATION
  Report Type: Spontaneous
  Country: US (occurrence: US)
  Receive Date: 20190628
  Receipt Date: 20190628
  Transmission Date: 20190711
  Serious: Yes (Other)
  Sender: FDA-Public Use
  Company Number: US-HIKMA PHARMACEUTICALS USA INC.-US-H14001-19-04108

PATIENT
  Sex: Female
  Weight: 78.47 kg

DRUGS (4)
  1. D10 [Concomitant]
     Indication: PRODUCT USED FOR UNKNOWN INDICATION
     Dosage: 500 CC BAG, MINIMUM ONE A DAY
     Route: 042
     Dates: start: 2004
  2. PHENERGAN [Suspect]
     Active Substance: PROMETHAZINE HYDROCHLORIDE
     Indication: VOMITING
     Route: 042
     Dates: start: 2004
  3. NORMAL SALINE [Concomitant]
     Active Substance: SODIUM CHLORIDE
     Indication: VOMITING
     Dosage: 1 L BAG DEPENDING ON HOW MUCH FLUID SHE CAN TAKE IN
     Route: 042
     Dates: start: 2004
  4. ZOFRAN [Suspect]
     Active Substance: ONDANSETRON HYDROCHLORIDE
     Indication: VOMITING
     Route: 042
     Dates: start: 2004

REACTIONS (2)
  - Condition aggravated [Unknown]
  - Porphyria acute [Unknown]

NARRATIVE: CASE EVENT DATE: 2004
